FAERS Safety Report 7693017-5 (Version None)
Quarter: 2011Q3

REPORT INFORMATION
  Report Type: 
  Country: None (occurrence: None)
  Receive Date: 20110819
  Receipt Date: 20110817
  Transmission Date: 20111222
  Serious: Yes (Other)
  Sender: FDA-Public Use
  Company Number: US-BAYER-2011-074145

PATIENT
  Age: 29 Year
  Sex: Female

DRUGS (1)
  1. DROSPIRENONE AND ETHINYL ESTRADIOL [Suspect]
     Dosage: UNK
     Dates: start: 20081001, end: 20090901

REACTIONS (8)
  - INJURY [None]
  - GASTROINTESTINAL DISORDER [None]
  - GALLBLADDER DISORDER [None]
  - ANXIETY [None]
  - POST CHOLECYSTECTOMY SYNDROME [None]
  - PSYCHIATRIC SYMPTOM [None]
  - ANHEDONIA [None]
  - PAIN [None]
